FAERS Safety Report 8236004 (Version 4)
Quarter: 2020Q3

REPORT INFORMATION
  Report Type: Report from Study
  Country: FR (occurrence: SN)
  Receive Date: 20111108
  Receipt Date: 20181029
  Transmission Date: 20201104
  Serious: Yes (Death)
  Sender: FDA-Public Use
  Company Number: FR-JNJFOC-20111101788

PATIENT
  Age: 47 Year
  Sex: Male

DRUGS (4)
  1. TMC278 [Suspect]
     Active Substance: DARUNAVIR
     Indication: HIV INFECTION
     Route: 048
     Dates: start: 20090226, end: 20110330
  2. TMC278 [Suspect]
     Active Substance: DARUNAVIR
     Indication: HIV INFECTION
     Route: 048
     Dates: start: 20110331
  3. TRUVADA [Suspect]
     Active Substance: EMTRICITABINE\TENOFOVIR DISOPROXIL FUMARATE
     Indication: HIV INFECTION
     Dates: start: 20110331
  4. CICLOPIROX. [Concomitant]
     Active Substance: CICLOPIROX
     Indication: SEBORRHOEIC DERMATITIS
     Route: 061

REACTIONS (1)
  - Death [Fatal]

NARRATIVE: CASE EVENT DATE: 20110423
